FAERS Safety Report 7936402-6 (Version None)
Quarter: 2011Q4

REPORT INFORMATION
  Report Type: 
  Country: None (occurrence: None)
  Receive Date: 20111123
  Receipt Date: 20111121
  Transmission Date: 20120403
  Serious: Yes (Other)
  Sender: FDA-Public Use
  Company Number: US-PFIZER INC-2011285332

PATIENT
  Sex: Male
  Weight: 104 kg

DRUGS (5)
  1. ULTRAM [Concomitant]
     Indication: PAIN
     Dosage: 50 MG, 3X/DAY
  2. LYRICA [Suspect]
     Indication: NERVE INJURY
  3. GABAPENTIN [Suspect]
     Indication: NEURALGIA
     Dosage: 300 MG, DAILY
  4. LYRICA [Suspect]
     Indication: SPINAL COLUMN STENOSIS
     Dosage: 50 MG, 3X/DAY
     Route: 048
     Dates: start: 20111101
  5. LYRICA [Suspect]
     Indication: NEURALGIA

REACTIONS (9)
  - DIZZINESS [None]
  - PYREXIA [None]
  - SPINAL COLUMN STENOSIS [None]
  - PAIN [None]
  - WHITE BLOOD CELL COUNT DECREASED [None]
  - OEDEMA PERIPHERAL [None]
  - MUSCLE SPASMS [None]
  - TREMOR [None]
  - GAIT DISTURBANCE [None]
